FAERS Safety Report 25104675 (Version 2)
Quarter: 2025Q2

REPORT INFORMATION
  Report Type: Spontaneous
  Country: FR (occurrence: FR)
  Receive Date: 20250321
  Receipt Date: 20250618
  Transmission Date: 20250717
  Serious: Yes (Hospitalization, Other)
  Sender: BRISTOL-MYERS SQUIBB COMPANY
  Company Number: FR-BRISTOL-MYERS SQUIBB COMPANY-2025-041619

PATIENT
  Age: 69 Year
  Sex: Male
  Weight: 102.5 kg

DRUGS (2)
  1. NULOJIX [Suspect]
     Active Substance: BELATACEPT
     Indication: Renal transplant
     Dosage: DOSE : 6 MG/KG, 625 MG
  2. CELLCEPT [Concomitant]
     Active Substance: MYCOPHENOLATE MOFETIL
     Indication: Product used for unknown indication
     Dosage: MORNING AND EVENING

REACTIONS (4)
  - Fall [Unknown]
  - Hip fracture [Unknown]
  - Clumsiness [Unknown]
  - Off label use [Unknown]
